FAERS Safety Report 7440406-X (Version None)
Quarter: 2011Q2

REPORT INFORMATION
  Report Type: 
  Country: None (occurrence: None)
  Receive Date: 20110427
  Receipt Date: 20110406
  Transmission Date: 20111010
  Serious: No
  Sender: FDA-Public Use
  Company Number: US-B.I. PHARMACEUTICALS,INC./RIDGEFIELD-2011-BP-10261BP

PATIENT
  Sex: Female

DRUGS (5)
  1. SPIRIVA [Suspect]
     Indication: CHRONIC OBSTRUCTIVE PULMONARY DISEASE
     Dosage: 18 MCG
     Route: 055
     Dates: start: 20110301
  2. VITAMINS [Concomitant]
  3. SPIRIVA [Suspect]
     Indication: ASTHMA
  4. SPIRIVA [Suspect]
     Indication: BRONCHITIS
  5. BENADRYL [Concomitant]
     Indication: SEASONAL ALLERGY

REACTIONS (2)
  - VERTIGO [None]
  - DIZZINESS [None]
